FAERS Safety Report 22541180 (Version 1)
Quarter: 2023Q2

REPORT INFORMATION
  Report Type: Spontaneous
  Country: US (occurrence: US)
  Receive Date: 20230609
  Receipt Date: 20230609
  Transmission Date: 20230721
  Serious: No
  Sender: FDA-Public Use
  Company Number: US-SA-SAC20230608000884

PATIENT
  Sex: Female

DRUGS (1)
  1. DUPIXENT [Suspect]
     Active Substance: DUPILUMAB
     Indication: Prurigo
     Dosage: UNK
     Route: 058

REACTIONS (4)
  - Ear disorder [Unknown]
  - Hypercalcaemia [Unknown]
  - Parathyroid disorder [Unknown]
  - Middle insomnia [Unknown]
